FAERS Safety Report 5949833-0 (Version None)
Quarter: 2008Q4

REPORT INFORMATION
  Report Type: 
  Country: None (occurrence: None)
  Receive Date: 20081112
  Receipt Date: 20081103
  Transmission Date: 20090506
  Serious: Yes (Hospitalization)
  Sender: FDA-Public Use
  Company Number: US-BIOGENIDEC-2008BI010898

PATIENT
  Age: 51 Year
  Sex: Female
  Weight: 72 kg

DRUGS (4)
  1. AVONEX [Suspect]
     Indication: MULTIPLE SCLEROSIS
     Route: 030
     Dates: end: 20060101
  2. AVONEX [Suspect]
     Route: 030
     Dates: start: 19980501, end: 20030101
  3. AVONEX [Suspect]
     Route: 030
     Dates: start: 20070101
  4. AVONEX [Suspect]
     Route: 030
     Dates: start: 20080207

REACTIONS (3)
  - DRUG WITHDRAWAL CONVULSIONS [None]
  - INSOMNIA [None]
  - RESPIRATORY ARREST [None]
